FAERS Safety Report 6272328-4 (Version None)
Quarter: 2009Q3

REPORT INFORMATION
  Report Type: 
  Country: None (occurrence: None)
  Receive Date: 20090717
  Receipt Date: 20090629
  Transmission Date: 20100115
  Serious: Yes (Hospitalization)
  Sender: FDA-Public Use
  Company Number: MX-ROCHE-642191

PATIENT
  Sex: Male

DRUGS (3)
  1. MYCOPHENOLATE MOFETIL [Suspect]
     Indication: RENAL TRANSPLANT
     Route: 065
     Dates: start: 20060822
  2. BELATACEPT [Suspect]
     Indication: RENAL TRANSPLANT
     Dosage: THERAPY WAS INTRRUPTED.
     Route: 042
     Dates: start: 20060821
  3. PREDNISONE [Suspect]
     Indication: RENAL TRANSPLANT
     Route: 065
     Dates: start: 20070328

REACTIONS (2)
  - GASTROENTERITIS [None]
  - PYREXIA [None]
